FAERS Safety Report 12999255 (Version 1)
Quarter: 2016Q4

REPORT INFORMATION
  Report Type: Spontaneous
  Country: US (occurrence: US)
  Receive Date: 20161205
  Receipt Date: 20161205
  Transmission Date: 20170207
  Serious: No
  Sender: FDA-Public Use
  Company Number: US-GLAXOSMITHKLINE-US2016178879

PATIENT
  Sex: Female

DRUGS (2)
  1. CALCIUM SALT (CALCIUM) (CALCIUM) [Interacting]
     Active Substance: CALCIUM
     Indication: PRODUCT USED FOR UNKNOWN INDICATION
  2. CEFTIN [Suspect]
     Active Substance: CEFUROXIME AXETIL
     Indication: EAR INFECTION
     Dosage: 20 ML, BID
     Route: 048

REACTIONS (7)
  - Overdose [Unknown]
  - Drug interaction [Unknown]
  - Drug ineffective [Unknown]
  - Feeling hot [Unknown]
  - Dose calculation error [None]
  - Hyperhidrosis [Unknown]
  - Abdominal pain upper [Unknown]
